FAERS Safety Report 10418228 (Version 2)
Quarter: 2014Q3

REPORT INFORMATION
  Report Type: Spontaneous
  Country: US (occurrence: US)
  Receive Date: 20140829
  Receipt Date: 20140829
  Transmission Date: 20150326
  Serious: Yes (Hospitalization)
  Sender: FDA-Public Use
  Company Number: US-SA-2014SA092551

PATIENT
  Age: 84 Year
  Sex: Female
  Weight: 57 kg

DRUGS (22)
  1. CENTRUM SILVER [Concomitant]
     Active Substance: VITAMINS
     Route: 048
  2. TENORMIN [Concomitant]
     Active Substance: ATENOLOL
     Route: 048
  3. ACTONEL [Concomitant]
     Active Substance: RISEDRONATE SODIUM
  4. FELODIPINE. [Concomitant]
     Active Substance: FELODIPINE
     Route: 048
  5. FOSAMAX [Concomitant]
     Active Substance: ALENDRONATE SODIUM
     Dosage: ON SUNDAY
  6. CHONDROITIN W/GLUCOSAMINE [Concomitant]
  7. COENZYME Q10 [Concomitant]
     Active Substance: UBIDECARENONE
     Route: 048
  8. ATENOLOL. [Concomitant]
     Active Substance: ATENOLOL
  9. OMEGA 3 [Concomitant]
     Active Substance: OMEGA-3 FATTY ACIDS
     Route: 048
  10. CITRACAL [Concomitant]
     Active Substance: CALCIUM CITRATE
     Route: 048
  11. VITAMIN D [Concomitant]
     Active Substance: CHOLECALCIFEROL
  12. AMBIEN [Concomitant]
     Active Substance: ZOLPIDEM TARTRATE
     Dosage: AT BEDTIME
  13. PLAVIX [Suspect]
     Active Substance: CLOPIDOGREL BISULFATE
     Indication: STENT PLACEMENT
     Route: 048
     Dates: start: 20090127, end: 20090705
  14. MAGNESIUM [Concomitant]
     Active Substance: MAGNESIUM
  15. ZOCOR [Concomitant]
     Active Substance: SIMVASTATIN
     Dosage: AT BED TIME
  16. PREMARIN [Concomitant]
     Active Substance: ESTROGENS, CONJUGATED
  17. CARDIZEM [Concomitant]
     Active Substance: DILTIAZEM HYDROCHLORIDE
  18. ASPIRIN. [Concomitant]
     Active Substance: ASPIRIN
  19. POTASSIUM CHLORIDE. [Concomitant]
     Active Substance: POTASSIUM CHLORIDE
     Route: 048
  20. MICARDIS HCT [Concomitant]
     Active Substance: HYDROCHLOROTHIAZIDE\TELMISARTAN
     Dosage: DOSE: 80/25 GM A.M.
     Route: 048
  21. LOPRESSOR [Concomitant]
     Active Substance: METOPROLOL TARTRATE
     Dosage: HALF TABLET IN THE MORNING AND HALF IN THE EVENING
  22. PREMARIN [Concomitant]
     Active Substance: ESTROGENS, CONJUGATED
     Dosage: FREQUENCY: 2 TIMES PER WEEK

REACTIONS (13)
  - Staphylococcal infection [Unknown]
  - Agitation [Unknown]
  - Neutropenia [Unknown]
  - Head banging [Unknown]
  - Pyrexia [Recovered/Resolved]
  - Oropharyngeal pain [Unknown]
  - Leukopenia [Unknown]
  - Confusional state [Unknown]
  - Hyperaesthesia [Unknown]
  - Chills [Recovered/Resolved]
  - Malaise [Unknown]
  - Pancytopenia [Unknown]
  - Thrombocytopenia [Unknown]

NARRATIVE: CASE EVENT DATE: 200907
